FAERS Safety Report 12609474 (Version 2)
Quarter: 2016Q3

REPORT INFORMATION
  Report Type: Spontaneous
  Country: IT (occurrence: IT)
  Receive Date: 20160801
  Receipt Date: 20160802
  Transmission Date: 20161109
  Serious: Yes (Other)
  Sender: FDA-Public Use
  Company Number: IT-009507513-1607ITA011677

PATIENT
  Age: 46 Year
  Sex: Male
  Weight: 92 kg

DRUGS (7)
  1. NOVORAPID [Suspect]
     Active Substance: INSULIN ASPART
     Dosage: 15 UNITS AT LUNCH AND 15 UNITS AT DINNER
  2. APROVEL [Suspect]
     Active Substance: IRBESARTAN
     Dosage: 150 MG, DAILY
     Route: 048
  3. CARDIRENE [Suspect]
     Active Substance: ASPIRIN DL-LYSINE
     Dosage: 160 MG, UNK, FORMULATION: PELLETS
  4. FORXIGA [Suspect]
     Active Substance: DAPAGLIFLOZIN
     Indication: DIABETES MELLITUS
     Dosage: 10 MG, DAILY
     Route: 048
  5. CONGESCOR [Suspect]
     Active Substance: BISOPROLOL
     Dosage: 2.5 MG, ONE TABLET AT LUNCH
     Route: 048
  6. LEVEMIR [Suspect]
     Active Substance: INSULIN DETEMIR
     Indication: DIABETES MELLITUS
     Dosage: 20 UNITS AT BREAKFAST AND 20 UNITS AT 17:00
  7. EZETROL 10 MG COMPRESSE [Suspect]
     Active Substance: EZETIMIBE
     Dosage: 10 MG, DAILY
     Route: 048

REACTIONS (3)
  - Diabetes mellitus inadequate control [Unknown]
  - Neuropathy peripheral [Unknown]
  - Fatigue [Unknown]
